FAERS Safety Report 5382434-4 (Version None)
Quarter: 2007Q2

REPORT INFORMATION
  Report Type: 
  Country: None (occurrence: None)
  Receive Date: 20070629
  Receipt Date: 20060918
  Transmission Date: 20071010
  Serious: Yes (Other)
  Sender: FDA-Public Use
  Company Number: 2006112187

PATIENT
  Age: 39 Year
  Sex: Male

DRUGS (1)
  1. ZOLOFT [Suspect]
     Indication: GENERALISED ANXIETY DISORDER
     Dosage: 200 MG, (50 MG, 1 IN 1 D); 6 WEEKS AGO

REACTIONS (2)
  - DRUG INEFFECTIVE [None]
  - TREMOR [None]
